FAERS Safety Report 15570964 (Version 1)
Quarter: 2018Q4

REPORT INFORMATION
  Report Type: Spontaneous
  Country: CA (occurrence: CA)
  Receive Date: 20181031
  Receipt Date: 20181031
  Transmission Date: 20190205
  Serious: Yes (Life-Threatening, Hospitalization, Other)
  Sender: FDA-Public Use
  Company Number: CA-MYLANLABS-2018M1079659

PATIENT
  Age: 16 Year
  Sex: Female
  Weight: 76 kg

DRUGS (5)
  1. PRAZOSIN. [Interacting]
     Active Substance: PRAZOSIN
     Indication: INSOMNIA
     Dosage: 2 MG, HS
  2. NAPROXEN. [Suspect]
     Active Substance: NAPROXEN
     Indication: PRODUCT USED FOR UNKNOWN INDICATION
     Dosage: 250 DF, ONCE
     Route: 048
  3. ACETAMINOFEN [Interacting]
     Active Substance: ACETAMINOPHEN
     Indication: PRODUCT USED FOR UNKNOWN INDICATION
     Dosage: 325 DF, ONCE
     Route: 048
  4. PRAZOSIN. [Interacting]
     Active Substance: PRAZOSIN
     Dosage: 55 DF, ONCE
     Route: 048
  5. ACETAMINOFEN [Interacting]
     Active Substance: ACETAMINOPHEN
     Indication: PRODUCT USED FOR UNKNOWN INDICATION
     Dosage: 72 DF, ONCE
     Route: 048

REACTIONS (8)
  - Hypotension [Unknown]
  - Vomiting [Unknown]
  - Electrocardiogram QT prolonged [Unknown]
  - Depressed level of consciousness [Unknown]
  - Somnolence [Unknown]
  - Toxicity to various agents [Unknown]
  - Drug interaction [Unknown]
  - Sinus tachycardia [Unknown]
